FAERS Safety Report 5134470-0 (Version None)
Quarter: 2006Q4

REPORT INFORMATION
  Report Type: 
  Country: None (occurrence: None)
  Receive Date: 20061019
  Receipt Date: 20061004
  Transmission Date: 20070319
  Serious: Yes (Hospitalization)
  Sender: FDA-Public Use
  Company Number: REM_00274_2006

PATIENT
  Age: 69 Year
  Sex: Female
  Weight: 61.8 kg

DRUGS (9)
  1. REMODULIN [Suspect]
     Indication: PULMONARY HYPERTENSION
     Dosage: 60 NG/KG/MIN, CONTINOUS; IV
     Route: 042
     Dates: start: 20050301
  2. ZOLPIDEM TARTRATE [Concomitant]
  3. NPH INSULIN [Concomitant]
  4. ATENOLOL [Concomitant]
  5. FEXOFENADINE [Concomitant]
  6. PANTOPRAZOLE SODIUM [Concomitant]
  7. LEVOTHYROXINE SODIUM [Concomitant]
  8. ACETAMINOPHEN [Concomitant]
  9. VITAMIN CAP [Concomitant]

REACTIONS (7)
  - CATHETER RELATED INFECTION [None]
  - DIARRHOEA [None]
  - ENTEROBACTER INFECTION [None]
  - PSEUDOMONAS INFECTION [None]
  - SEPSIS [None]
  - THROMBOCYTOPENIA [None]
  - VOMITING [None]
